FAERS Safety Report 16103923 (Version 1)
Quarter: 2019Q1

REPORT INFORMATION
  Report Type: Spontaneous
  Country: US (occurrence: US)
  Receive Date: 20190322
  Receipt Date: 20190322
  Transmission Date: 20190418
  Serious: No
  Sender: FDA-Public Use
  Company Number: US-HIKMA PHARMACEUTICALS USA INC.-US-H14001-18-06470

PATIENT
  Age: 47 Year
  Sex: Female

DRUGS (1)
  1. FLUTICASONE. [Suspect]
     Active Substance: FLUTICASONE
     Indication: HYPERSENSITIVITY
     Route: 045
     Dates: start: 201702, end: 201807

REACTIONS (3)
  - Epistaxis [Recovered/Resolved]
  - Product use in unapproved indication [Recovered/Resolved]
  - Administration site laceration [Recovered/Resolved]

NARRATIVE: CASE EVENT DATE: 201804
